FAERS Safety Report 9445077 (Version 1)
Quarter: 2013Q3

REPORT INFORMATION
  Report Type: Report from Study
  Country: IN (occurrence: IN)
  Receive Date: 20130807
  Receipt Date: 20130807
  Transmission Date: 20140515
  Serious: Yes (Death, Life-Threatening, Hospitalization)
  Sender: FDA-Public Use
  Company Number: PHHO2009IN12941

PATIENT
  Age: 62 Year
  Sex: Male
  Weight: 42 kg

DRUGS (3)
  1. QAB149 [Suspect]
     Indication: CHRONIC OBSTRUCTIVE PULMONARY DISEASE
     Dosage: 150 UG, UNK
     Route: 055
     Dates: start: 20090813, end: 20091018
  2. PANTOPRAZOLE [Concomitant]
  3. B-COMPLEX [Concomitant]

REACTIONS (11)
  - Cardiac arrest [Fatal]
  - Chronic obstructive pulmonary disease [Fatal]
  - Dyspnoea [Fatal]
  - Cough [Fatal]
  - Syncope [Fatal]
  - Hypoxia [Fatal]
  - Hypercapnia [Fatal]
  - Fatigue [Fatal]
  - Tachypnoea [Fatal]
  - Wheezing [Fatal]
  - Hyperkalaemia [Recovering/Resolving]
